FAERS Safety Report 23089734 (Version 1)
Quarter: 2023Q4

REPORT INFORMATION
  Report Type: Spontaneous
  Country: ES (occurrence: ES)
  Receive Date: 20231020
  Receipt Date: 20231020
  Transmission Date: 20240109
  Serious: Yes (Death, Other)
  Sender: FDA-Public Use
  Company Number: ES-GILEAD-2023-0646447

PATIENT
  Age: 50 Year
  Sex: Male

DRUGS (2)
  1. YESCARTA [Suspect]
     Active Substance: AXICABTAGENE CILOLEUCEL
     Indication: Diffuse large B-cell lymphoma
     Dosage: UNK
     Route: 042
     Dates: start: 20220923
  2. CISPLATIN;DEXAMETHASONE;GEMCITABINE;RITUXIMAB [Concomitant]
     Indication: Diffuse large B-cell lymphoma
     Dosage: UNK
     Dates: start: 202209, end: 202209

REACTIONS (10)
  - Death [Fatal]
  - Hypovolaemic shock [Unknown]
  - Intestinal ischaemia [Unknown]
  - Disease progression [Not Recovered/Not Resolved]
  - B-cell lymphoma recurrent [Not Recovered/Not Resolved]
  - Multiple organ dysfunction syndrome [Unknown]
  - Cytokine release syndrome [Unknown]
  - Immune effector cell-associated neurotoxicity syndrome [Unknown]
  - Micturition disorder [Unknown]
  - Constipation [Unknown]

NARRATIVE: CASE EVENT DATE: 20230201
